FAERS Safety Report 4707891-5 (Version None)
Quarter: 2005Q3

REPORT INFORMATION
  Report Type: 
  Country: None (occurrence: None)
  Receive Date: 20050707
  Receipt Date: 20040622
  Transmission Date: 20060218
  Serious: No
  Sender: FDA-Public Use
  Company Number: US-BRISTOL-MYERS SQUIBB COMPANY-12626917

PATIENT
  Age: 76 Year
  Sex: Male

DRUGS (7)
  1. SINEMET CR [Suspect]
     Indication: PARKINSON'S DISEASE
     Route: 048
  2. MIRAPEX [Concomitant]
  3. SYNTHROID [Concomitant]
  4. EZETIMIBE [Concomitant]
  5. REMINYL [Concomitant]
  6. ZETIA [Concomitant]
  7. ZOLOFT [Concomitant]

REACTIONS (2)
  - HYPERSENSITIVITY [None]
  - LIBIDO INCREASED [None]
